FAERS Safety Report 15972682 (Version 2)
Quarter: 2019Q1

REPORT INFORMATION
  Report Type: Spontaneous
  Country: SE (occurrence: SE)
  Receive Date: 20190216
  Receipt Date: 20190327
  Transmission Date: 20190418
  Serious: Yes (Death, Hospitalization)
  Sender: FDA-Public Use
  Company Number: SE-ACCORD-106762

PATIENT
  Sex: Male
  Weight: 76 kg

DRUGS (5)
  1. ACETYLSALICYLIC ACID [Concomitant]
     Active Substance: ASPIRIN
     Indication: PROPHYLAXIS
     Route: 048
  2. DOCETAXEL. [Suspect]
     Active Substance: DOCETAXEL
     Indication: NEOPLASM MALIGNANT
     Route: 042
     Dates: start: 20181126, end: 20181217
  3. ACCOFIL [Suspect]
     Active Substance: FILGRASTIM
     Indication: PROPHYLAXIS
     Dosage: FOR 5 DAYS?DAILY DOSE 48 ME
     Route: 058
     Dates: start: 20181128, end: 20181223
  4. ATENOLOL/ATENOLOL HYDROCHLORIDE [Concomitant]
     Indication: HYPERTENSION
  5. LEUPRORELIN [Concomitant]
     Active Substance: LEUPROLIDE ACETATE
     Indication: PROSTATE CANCER
     Route: 058
     Dates: start: 201803

REACTIONS (4)
  - Death [Fatal]
  - Fatigue [Unknown]
  - Bone pain [Unknown]
  - Lung infection [Unknown]

NARRATIVE: CASE EVENT DATE: 20181128
